FAERS Safety Report 7293502-4 (Version None)
Quarter: 2011Q1

REPORT INFORMATION
  Report Type: 
  Country: None (occurrence: None)
  Receive Date: 20110215
  Receipt Date: 20101129
  Transmission Date: 20110831
  Serious: Yes (Other)
  Sender: FDA-Public Use
  Company Number: ES-SANOFI-AVENTIS-2010SA072681

PATIENT
  Age: 85 Year
  Sex: Female

DRUGS (8)
  1. MULTAQ [Suspect]
     Route: 048
     Dates: start: 20101111
  2. TRANGOREX [Suspect]
     Route: 048
     Dates: end: 20101108
  3. BISOPROLOL [Concomitant]
  4. SEGURIL [Concomitant]
  5. LEXATIN [Concomitant]
  6. ATACAND [Concomitant]
  7. SOMAZINA [Concomitant]
  8. SINTROM [Concomitant]
     Dosage: DOSE:0.5 UNIT(S)
     Route: 065

REACTIONS (5)
  - RENAL FAILURE [None]
  - HEPATITIS TOXIC [None]
  - VOMITING [None]
  - ATRIAL FIBRILLATION [None]
  - DIARRHOEA [None]
